FAERS Safety Report 25749642 (Version 3)
Quarter: 2025Q4

REPORT INFORMATION
  Report Type: Spontaneous
  Country: US (occurrence: US)
  Receive Date: 20250902
  Receipt Date: 20251230
  Transmission Date: 20260118
  Serious: No
  Sender: SUNOVION
  Company Number: US-SMPA-2025SPA010921

PATIENT
  Age: 59 Year
  Sex: Male

DRUGS (29)
  1. ORGOVYX [Suspect]
     Active Substance: RELUGOLIX
     Indication: Product used for unknown indication
     Dosage: 360 MG, SINGLE
     Route: 048
     Dates: start: 20250729, end: 20250729
  2. ORGOVYX [Suspect]
     Active Substance: RELUGOLIX
     Dosage: 120 MG, QD
     Route: 048
     Dates: start: 20250730
  3. ERLEADA [Suspect]
     Active Substance: APALUTAMIDE
     Dosage: UNK
  4. TOPROL XL [Concomitant]
     Active Substance: METOPROLOL SUCCINATE
  5. CRESTOR [Concomitant]
     Active Substance: ROSUVASTATIN CALCIUM
  6. RAPAFLO [Concomitant]
     Active Substance: SILODOSIN
  7. FINASTERIDE [Concomitant]
     Active Substance: FINASTERIDE
  8. CIALIS [Concomitant]
     Active Substance: TADALAFIL
  9. VASCEPA [Concomitant]
     Active Substance: ICOSAPENT ETHYL
  10. OXYCODONE [Concomitant]
     Active Substance: OXYCODONE
  11. HYDROMORPHONE [Concomitant]
     Active Substance: HYDROMORPHONE
  12. ONDANSETRON [Concomitant]
     Active Substance: ONDANSETRON
  13. ANUCORT-HC [Concomitant]
     Active Substance: HYDROCORTISONE ACETATE
     Route: 054
  14. LIVER EXTRACT [Concomitant]
     Active Substance: MAMMAL LIVER
  15. LECITHIN [Concomitant]
     Active Substance: LECITHIN
  16. DIETARY SUPPLEMENT\RESVERATROL [Concomitant]
     Active Substance: DIETARY SUPPLEMENT\RESVERATROL
  17. Vitamin c complex [Concomitant]
  18. Ultimate Friendly Flora Probiotic [Concomitant]
  19. Ultimate eye support with astaxanthin [Concomitant]
  20. MENAQUINONE 6 [Concomitant]
     Active Substance: MENAQUINONE 6
  21. VITAMINS [Concomitant]
     Active Substance: VITAMINS
  22. ZYRTEC [Concomitant]
     Active Substance: CETIRIZINE HYDROCHLORIDE
  23. FAMOTIDINE [Concomitant]
     Active Substance: FAMOTIDINE
  24. OXYMETAZOLINE [Concomitant]
     Active Substance: OXYMETAZOLINE
  25. GAVISCON [Concomitant]
     Active Substance: ALUMINUM HYDROXIDE\MAGNESIUM CARBONATE
  26. GAS RELIEF [Concomitant]
     Active Substance: DIMETHICONE
  27. ACETAMINOPHEN [Concomitant]
     Active Substance: ACETAMINOPHEN
  28. IBUPROFEN [Concomitant]
     Active Substance: IBUPROFEN
  29. ZYRTEC-D ALLERGY AND CONGESTION [Concomitant]
     Active Substance: CETIRIZINE HYDROCHLORIDE\PSEUDOEPHEDRINE HYDROCHLORIDE
     Dosage: UNK

REACTIONS (6)
  - Arthralgia [Unknown]
  - Myalgia [Not Recovered/Not Resolved]
  - Fatigue [Unknown]
  - Muscle spasms [Unknown]
  - Pain [Unknown]
  - Feeling abnormal [Unknown]
